FAERS Safety Report 13154781 (Version 1)
Quarter: 2017Q1

REPORT INFORMATION
  Report Type: Report from Study
  Country: US (occurrence: US)
  Receive Date: 20170126
  Receipt Date: 20170126
  Transmission Date: 20170428
  Serious: No
  Sender: FDA-Public Use
  Company Number: US-AMGEN-USASL2016154941

PATIENT
  Age: 84 Year
  Sex: Male

DRUGS (1)
  1. KYPROLIS [Suspect]
     Active Substance: CARFILZOMIB
     Indication: PLASMA CELL MYELOMA
     Dosage: 42 MG, D1,D2,D8,D9,D15,D16 PER 28 DAYS
     Route: 065
     Dates: end: 201610

REACTIONS (1)
  - Drug intolerance [Unknown]
